FAERS Safety Report 5013637-6 (Version None)
Quarter: 2006Q2

REPORT INFORMATION
  Report Type: 
  Country: None (occurrence: None)
  Receive Date: 20060530
  Receipt Date: 20060516
  Transmission Date: 20061013
  Serious: Yes (Hospitalization)
  Sender: FDA-Public Use
  Company Number: FR-GLAXOSMITHKLINE-B0423946A

PATIENT
  Age: 85 Year
  Sex: Female
  Weight: 68 kg

DRUGS (7)
  1. DEROXAT [Suspect]
     Indication: DEPRESSION
     Dosage: 20MG PER DAY
     Route: 048
     Dates: end: 20060223
  2. MORPHINE CHLORHYDRATE [Suspect]
     Indication: SPINAL FRACTURE
     Dosage: 5MG AS REQUIRED
     Route: 058
     Dates: start: 20060202, end: 20060203
  3. SKENAN LP [Suspect]
     Indication: SPINAL FRACTURE
     Dosage: 20MG PER DAY
     Route: 048
     Dates: start: 20060202, end: 20060210
  4. MOPRAL [Suspect]
     Indication: PROPHYLAXIS
     Dosage: 20MG PER DAY
     Route: 048
     Dates: end: 20060301
  5. ALDACTAZIDE [Suspect]
     Indication: ESSENTIAL HYPERTENSION
     Dosage: 1TAB PER DAY
     Route: 048
     Dates: end: 20060223
  6. CORTANCYL [Suspect]
     Indication: OPTIC NEURITIS
     Dosage: 30MG PER DAY
     Route: 048
     Dates: start: 20050501
  7. ACUPAN [Suspect]
     Indication: SPINAL FRACTURE
     Dosage: 3INJ PER DAY
     Route: 030
     Dates: start: 20060210, end: 20060216

REACTIONS (4)
  - CONFUSIONAL STATE [None]
  - DRUG INTERACTION [None]
  - HALLUCINATION [None]
  - HYPONATRAEMIA [None]
